FAERS Safety Report 13988150 (Version 3)
Quarter: 2020Q1

REPORT INFORMATION
  Report Type: Spontaneous
  Country: OM (occurrence: OM)
  Receive Date: 20170919
  Receipt Date: 20200113
  Transmission Date: 20200409
  Serious: Yes (Life-Threatening, Other)
  Sender: FDA-Public Use
  Company Number: OM-APOPHARMA-2017AP018170

PATIENT
  Age: 9 Year
  Sex: Male

DRUGS (3)
  1. FERRIPROX [Suspect]
     Active Substance: DEFERIPRONE
     Dosage: 85 MG/KG, QD
     Route: 048
  2. FERRIPROX [Suspect]
     Active Substance: DEFERIPRONE
     Indication: THALASSAEMIA BETA
     Dosage: 75 MG/KG, QD
     Route: 048
  3. FERRIPROX [Suspect]
     Active Substance: DEFERIPRONE
     Dosage: 100 MG/KG, QD
     Route: 048

REACTIONS (5)
  - Febrile neutropenia [Unknown]
  - Cellulitis [Unknown]
  - Neutropenia [Unknown]
  - Agranulocytosis [Recovered/Resolved]
  - Lymphopenia [Unknown]

NARRATIVE: CASE EVENT DATE: 20161220
